FAERS Safety Report 14252340 (Version 8)
Quarter: 2018Q3

REPORT INFORMATION
  Report Type: Report from Study
  Country: US (occurrence: US)
  Receive Date: 20171205
  Receipt Date: 20180905
  Transmission Date: 20181010
  Serious: Yes (Hospitalization, Other)
  Sender: FDA-Public Use
  Company Number: US-SA-2017SA207805

PATIENT
  Age: 62 Year
  Sex: Female
  Weight: 54.6 kg

DRUGS (32)
  1. ROCEPHIN [Concomitant]
     Active Substance: CEFTRIAXONE SODIUM
     Dosage: 1 G,QD
     Route: 042
     Dates: end: 20171022
  2. ASPIRIN (E.C.) [Concomitant]
     Active Substance: ASPIRIN
     Dosage: 81 MG,QD
     Route: 048
     Dates: end: 20171023
  3. TOCOPHEROL [Concomitant]
     Active Substance: TOCOPHEROL
     Dosage: 400 DF,QD
     Route: 048
     Dates: end: 20171023
  4. OSCAL 500?D [Concomitant]
     Dosage: 1 DF,UNK
     Route: 048
     Dates: end: 20171023
  5. VOLTAREN [DICLOFENAC] [Concomitant]
     Active Substance: DICLOFENAC SODIUM
     Dosage: 25 MG,UNK
     Route: 048
     Dates: end: 20171023
  6. HEPARINE [HEPARIN] [Concomitant]
     Dosage: 5000 DF,UNK
     Route: 058
     Dates: end: 20171023
  7. CEPHAELIS SPP. FLUID EXTRACT;CHLOROFORM;CITRIC ACID;CODEINE PHOSPHATE; [Concomitant]
     Dosage: 5 ML,UNK
     Route: 048
     Dates: end: 20171022
  8. PARACETAMOL [Concomitant]
     Active Substance: ACETAMINOPHEN
     Dosage: 650 MG,UNK
     Route: 054
  9. MORPHINE SULFATE. [Concomitant]
     Active Substance: MORPHINE SULFATE
     Dosage: 2 MG,UNK
     Route: 042
  10. LIORESAL [Concomitant]
     Active Substance: BACLOFEN
     Dosage: 10 MG,TID
     Route: 048
     Dates: end: 20171023
  11. VITAMIN D3 [Concomitant]
     Active Substance: CHOLECALCIFEROL
     Dosage: 5000 DF,QD
     Route: 048
     Dates: end: 20171023
  12. FAMOTIDINE. [Concomitant]
     Active Substance: FAMOTIDINE
     Dosage: 20 MG,QD
     Route: 048
     Dates: end: 20171023
  13. SODIUM CHLORIDE. [Concomitant]
     Active Substance: SODIUM CHLORIDE
     Dosage: 75 ML/HR; CONTINUOUS
     Route: 042
     Dates: end: 20171023
  14. AMBIEN [Concomitant]
     Active Substance: ZOLPIDEM TARTRATE
     Dosage: 5 ML,UNK
     Route: 048
     Dates: end: 20171022
  15. METHYLPREDNISOLONE. [Concomitant]
     Active Substance: METHYLPREDNISOLONE
     Dosage: UNK UNK,UNK
     Route: 065
  16. ZITHROMAX [Concomitant]
     Active Substance: AZITHROMYCIN DIHYDRATE
     Dosage: UNK UNK,QD
     Route: 042
     Dates: end: 20171022
  17. CULTURELLE [Concomitant]
     Active Substance: LACTOBACILLUS RHAMNOSUS
     Dosage: 1 DF,UNK
     Route: 048
     Dates: end: 20171022
  18. GLICLAZIDE [Concomitant]
     Active Substance: GLICLAZIDE
     Dosage: 10 MG,QD
     Route: 048
     Dates: end: 20171023
  19. MAG?OX [Concomitant]
     Active Substance: MAGNESIUM OXIDE
     Dosage: 200 MG,UNK
     Route: 048
     Dates: end: 20171023
  20. FISH OIL [Concomitant]
     Active Substance: FISH OIL
     Dosage: 1000 MG,UNK
     Route: 048
     Dates: end: 20171023
  21. PLANTAGO OVATA [Concomitant]
     Active Substance: HERBALS\PLANTAGO OVATA LEAF
     Dosage: UNK UNK,BID
     Route: 048
     Dates: end: 20171021
  22. NITROSTAT [Concomitant]
     Active Substance: NITROGLYCERIN
     Dosage: .4 MG,UNK
     Route: 060
  23. MUCINEX [Concomitant]
     Active Substance: GUAIFENESIN
     Dosage: 600 MG,BID
     Route: 048
     Dates: end: 20171023
  24. ALBUTEROL;IPRATROPIUM [Concomitant]
     Dosage: 3 ML,QID
     Route: 055
     Dates: end: 20171023
  25. ATROPINE. [Concomitant]
     Active Substance: ATROPINE
     Dosage: .5 MG,UNK
     Route: 042
  26. COLACE [Concomitant]
     Active Substance: DOCUSATE SODIUM
     Dosage: 100 MG,QD
     Route: 048
     Dates: end: 20171021
  27. VALTREX [Concomitant]
     Active Substance: VALACYCLOVIR HYDROCHLORIDE
     Dosage: 1000 MG,QD
     Route: 048
     Dates: end: 20171023
  28. ALEMTUZUMAB [Suspect]
     Active Substance: ALEMTUZUMAB
     Indication: MULTIPLE SCLEROSIS RELAPSE
     Dosage: 12 MG,UNK
     Route: 041
     Dates: start: 20170925, end: 20170929
  29. PARACETAMOL [Concomitant]
     Active Substance: ACETAMINOPHEN
     Dosage: 650 MG,UNK
     Route: 048
     Dates: end: 20171023
  30. ASCORBIC ACID. [Concomitant]
     Active Substance: ASCORBIC ACID
     Dosage: 250 MG,QD
     Route: 048
     Dates: end: 20171023
  31. NEURONTIN [Concomitant]
     Active Substance: GABAPENTIN
     Dosage: 300 MG,TID
     Route: 048
     Dates: end: 20171023
  32. VITAMINS NOS [Concomitant]
     Active Substance: VITAMINS
     Dosage: UNK UNK,QD
     Route: 048
     Dates: end: 20171023

REACTIONS (31)
  - Dyspnoea exertional [Recovered/Resolved]
  - Cough [Recovered/Resolved]
  - Headache [Recovered/Resolved]
  - Stress urinary incontinence [Recovered/Resolved]
  - White blood cell count increased [Recovered/Resolved]
  - Oedema peripheral [Recovered/Resolved]
  - Dysphonia [Recovered/Resolved]
  - Insomnia [Recovering/Resolving]
  - Sepsis [Recovered/Resolved]
  - Troponin increased [Recovered/Resolved]
  - Muscular weakness [Recovering/Resolving]
  - Urinary tract infection [Recovered/Resolved]
  - Hypokalaemia [Recovered/Resolved]
  - Chills [Recovered/Resolved]
  - Dysphagia [Recovered/Resolved]
  - Fatigue [Recovered/Resolved]
  - Systemic inflammatory response syndrome [Recovered/Resolved]
  - Pneumonia [Recovering/Resolving]
  - Tachypnoea [Recovered/Resolved]
  - Micturition urgency [Recovering/Resolving]
  - Pulmonary congestion [Recovered/Resolved]
  - Fall [Recovered/Resolved]
  - Hyperglycaemia [Recovered/Resolved]
  - Muscle spasms [Not Recovered/Not Resolved]
  - Urinary hesitation [Recovered/Resolved]
  - Decreased appetite [Recovered/Resolved]
  - Pyrexia [Recovered/Resolved]
  - Hypoxia [Recovered/Resolved]
  - Hyponatraemia [Recovered/Resolved]
  - Tachycardia [Recovered/Resolved]
  - Diarrhoea [Recovered/Resolved]

NARRATIVE: CASE EVENT DATE: 20170925
